FAERS Safety Report 5870601-2 (Version None)
Quarter: 2008Q3

REPORT INFORMATION
  Report Type: 
  Country: None (occurrence: None)
  Receive Date: 20080904
  Receipt Date: 20080902
  Transmission Date: 20090109
  Serious: Yes (Other)
  Sender: FDA-Public Use
  Company Number: B0526323A

PATIENT
  Age: 49 Year

DRUGS (2)
  1. ALKERAN [Suspect]
     Indication: TRANSPLANT
     Dosage: 118MG PER DAY
     Route: 042
     Dates: start: 20080617
  2. FLUDARA [Concomitant]
     Route: 065
     Dates: start: 20080612, end: 20080616

REACTIONS (3)
  - ARRHYTHMIA [None]
  - ATRIAL FIBRILLATION [None]
  - TACHYCARDIA [None]
